FAERS Safety Report 9126092 (Version 2)
Quarter: 2013Q4

REPORT INFORMATION
  Report Type: Spontaneous
  Country: US (occurrence: US)
  Receive Date: 20130117
  Receipt Date: 20131129
  Transmission Date: 20140711
  Serious: Yes (Other)
  Sender: FDA-Public Use
  Company Number: US-ASTRAZENECA-2013SE00456

PATIENT
  Age: 19 Year
  Sex: Male
  Weight: 83.9 kg

DRUGS (9)
  1. SEROQUEL [Suspect]
     Indication: AFFECTIVE DISORDER
     Route: 048
     Dates: start: 2007
  2. SEROQUEL [Suspect]
     Indication: ANGER
     Route: 048
     Dates: start: 2007
  3. SEROQUEL [Suspect]
     Indication: INSOMNIA
     Route: 048
     Dates: start: 2007
  4. SEROQUEL [Suspect]
     Indication: AFFECTIVE DISORDER
     Route: 048
  5. SEROQUEL [Suspect]
     Indication: ANGER
     Route: 048
  6. SEROQUEL [Suspect]
     Indication: INSOMNIA
     Route: 048
  7. ZOLOFT [Concomitant]
     Dates: start: 201310
  8. AMBIEN [Concomitant]
  9. LUNESTA [Concomitant]

REACTIONS (9)
  - Loss of consciousness [Unknown]
  - Drug dependence [Unknown]
  - Insomnia [Unknown]
  - Headache [Unknown]
  - Cluster headache [Unknown]
  - Depression [Unknown]
  - Drug dose omission [Unknown]
  - Intentional drug misuse [Unknown]
  - Off label use [Unknown]
